FAERS Safety Report 24564611 (Version 1)
Quarter: 2024Q4

REPORT INFORMATION
  Report Type: Spontaneous
  Country: US (occurrence: US)
  Receive Date: 20241030
  Receipt Date: 20241030
  Transmission Date: 20250115
  Serious: Yes (Hospitalization)
  Sender: ROCHE
  Company Number: US-ROCHE-10000119075

PATIENT
  Sex: Male

DRUGS (1)
  1. RITUXIMAB [Suspect]
     Active Substance: RITUXIMAB
     Indication: Follicular lymphoma
     Route: 065

REACTIONS (7)
  - Pneumonia [Unknown]
  - Lymphopenia [Unknown]
  - Corynebacterium bacteraemia [Unknown]
  - Oral herpes [Unknown]
  - Rhinovirus infection [Unknown]
  - Pseudomonas infection [Unknown]
  - Bacteroides infection [Unknown]
